FAERS Safety Report 23778507 (Version 1)
Quarter: 2024Q2

REPORT INFORMATION
  Report Type: Spontaneous
  Country: SI (occurrence: SI)
  Receive Date: 20240424
  Receipt Date: 20240424
  Transmission Date: 20240716
  Serious: Yes (Life-Threatening, Hospitalization, Other)
  Sender: FDA-Public Use
  Company Number: SI-JNJFOC-20240423189

PATIENT
  Age: 60 Year

DRUGS (16)
  1. RISPERDAL [Suspect]
     Active Substance: RISPERIDONE
     Indication: Psychotic symptom
     Dosage: LOW-DOSE
     Route: 065
     Dates: start: 201903
  2. RISPERDAL [Suspect]
     Active Substance: RISPERIDONE
     Dosage: GRADUALLY REDUCED TO 2 MG/DAY DIVIDED INTO TWO DOSES OVER THE FOLLOWING 3 DAYS
     Route: 065
     Dates: start: 2022
  3. RISPERDAL [Suspect]
     Active Substance: RISPERIDONE
     Dosage: GRADUALLY ESCALATED TO 9 MG/DAY, DIVIDED INTO TWO DOSES
     Route: 065
     Dates: start: 2022
  4. RISPERDAL [Suspect]
     Active Substance: RISPERIDONE
     Dosage: REDUCED TO 6MG/DAY
     Route: 065
     Dates: start: 202210
  5. RISPERDAL [Suspect]
     Active Substance: RISPERIDONE
     Dosage: GRADUALLY REDUCED TO 2 MG/DAY DIVIDED INTO TWO DOSES OVER THE FOLLOWING 3 DAYS?LAST ADMINISTRATION:
     Route: 065
     Dates: start: 2022
  6. RISPERDAL [Suspect]
     Active Substance: RISPERIDONE
     Dosage: REDUCED TO 6 MG/DAY
     Route: 065
     Dates: start: 202210
  7. RISPERDAL [Suspect]
     Active Substance: RISPERIDONE
     Dosage: GRADUALLY ESCALATED TO 9 MG/DAY, DIVIDED INTO TWO DOSES
     Route: 065
     Dates: start: 2022
  8. BREXPIPRAZOLE [Suspect]
     Active Substance: BREXPIPRAZOLE
     Indication: Psychotic symptom
     Dosage: LAST ADMINISTRATION: //2022
     Route: 065
     Dates: start: 2022
  9. FLUPHENAZINE [Suspect]
     Active Substance: FLUPHENAZINE
     Indication: Psychotic symptom
     Dosage: REDUCED?LAST ADMINISTRATION: /OCT/2022
     Route: 065
     Dates: start: 202210
  10. FLUPHENAZINE [Suspect]
     Active Substance: FLUPHENAZINE
     Dosage: DIVIDED INTO TWO DOSES
     Route: 065
     Dates: start: 202208
  11. ARIPIPRAZOLE [Suspect]
     Active Substance: ARIPIPRAZOLE
     Indication: Psychotic symptom
     Route: 065
     Dates: start: 202211
  12. ARIPIPRAZOLE [Suspect]
     Active Substance: ARIPIPRAZOLE
     Dosage: INCREASED?LAST ADMINISTRATION: //2022
     Route: 065
     Dates: start: 2022
  13. OLANZAPINE [Suspect]
     Active Substance: OLANZAPINE
     Indication: Psychotic symptom
     Route: 065
     Dates: start: 202211
  14. OLANZAPINE [Suspect]
     Active Substance: OLANZAPINE
     Dosage: LAST ADMINISTRATION: //2022
     Route: 065
     Dates: start: 2022
  15. BIPERIDEN [Concomitant]
     Active Substance: BIPERIDEN
     Dosage: DIVIDED INTO TWO DOSES
     Route: 065
  16. BIPERIDEN [Concomitant]
     Active Substance: BIPERIDEN
     Route: 065

REACTIONS (14)
  - Neuroleptic malignant syndrome [Recovered/Resolved]
  - Extrapyramidal disorder [Recovered/Resolved]
  - Bradykinesia [Recovered/Resolved]
  - Reduced facial expression [Recovered/Resolved]
  - Staphylococcal infection [Unknown]
  - Dysphagia [Recovered/Resolved]
  - Pneumonia bacterial [Unknown]
  - Akathisia [Recovered/Resolved]
  - Dysphonia [Recovered/Resolved]
  - Cogwheel rigidity [Recovered/Resolved]
  - Enterobacter infection [Unknown]
  - Influenza [Unknown]
  - Pneumonia [Recovered/Resolved]
  - Respiratory distress [Recovered/Resolved]

NARRATIVE: CASE EVENT DATE: 20220101
